FAERS Safety Report 4907344-5 (Version None)
Quarter: 2006Q1

REPORT INFORMATION
  Report Type: 
  Country: None (occurrence: None)
  Receive Date: 20060208
  Receipt Date: 20060208
  Transmission Date: 20060701
  Serious: Yes (Hospitalization)
  Sender: FDA-Public Use
  Company Number: None

PATIENT
  Age: 81 Year
  Sex: Male

DRUGS (5)
  1. GLYBURIDE [Suspect]
     Indication: DIABETES MELLITUS NON-INSULIN-DEPENDENT
     Dosage: 10MG QAM + 5MG QPM
     Dates: start: 19951001
  2. DICYCLOMINE [Concomitant]
  3. GATIFLOXACIN [Concomitant]
  4. METOPROLOL [Concomitant]
  5. CARBIDOPA AND LEVODOPA [Concomitant]

REACTIONS (2)
  - CONVULSION [None]
  - TREMOR [None]
